FAERS Safety Report 19296091 (Version 3)
Quarter: 2021Q4

REPORT INFORMATION
  Report Type: Spontaneous
  Country: US (occurrence: US)
  Receive Date: 20210524
  Receipt Date: 20211004
  Transmission Date: 20220303
  Serious: Yes (Other)
  Sender: FDA-Public Use
  Company Number: US-PURDUE-USA-2020-0164330

PATIENT
  Sex: Male

DRUGS (1)
  1. OXYCONTIN [Suspect]
     Active Substance: OXYCODONE HYDROCHLORIDE
     Indication: Accident
     Dosage: UNK
     Route: 048

REACTIONS (9)
  - Near death experience [Unknown]
  - Overdose [Unknown]
  - Drug dependence [Unknown]
  - Seizure [Unknown]
  - Learning disability [Unknown]
  - Developmental delay [Unknown]
  - Ill-defined disorder [Unknown]
  - Emotional distress [Unknown]
  - Disturbance in attention [Unknown]
